FAERS Safety Report 7816326-5 (Version None)
Quarter: 2011Q4

REPORT INFORMATION
  Report Type: 
  Country: None (occurrence: None)
  Receive Date: 20111017
  Receipt Date: 20111004
  Transmission Date: 20120403
  Serious: Yes (Other)
  Sender: FDA-Public Use
  Company Number: NL-AMGEN-NLDSP2011045422

PATIENT
  Age: 59 Year
  Sex: Female
  Weight: 54 kg

DRUGS (8)
  1. FOLIC ACID [Concomitant]
     Dosage: UNK
  2. ALENDRONIC ACID [Concomitant]
     Dosage: UNK
  3. CELEBREX [Concomitant]
     Dosage: UNK
  4. METHOTREXATE SODIUM [Concomitant]
     Dosage: UNK
  5. MARCUMAR [Concomitant]
     Dosage: UNK
  6. CALCIUM CARBONATE [Concomitant]
     Dosage: UNK
  7. ENBREL [Suspect]
     Indication: PSORIATIC ARTHROPATHY
     Dosage: 50 MG, WEEKLY
     Dates: start: 20110726
  8. PREDNISONE [Concomitant]
     Dosage: UNK

REACTIONS (8)
  - OEDEMA PERIPHERAL [None]
  - PAIN IN EXTREMITY [None]
  - PSORIATIC ARTHROPATHY [None]
  - GAIT DISTURBANCE [None]
  - VASCULITIS [None]
  - INFECTION [None]
  - DRUG INEFFECTIVE [None]
  - HYPOAESTHESIA [None]
